FAERS Safety Report 4765538-6 (Version None)
Quarter: 2005Q3

REPORT INFORMATION
  Report Type: 
  Country: None (occurrence: None)
  Receive Date: 20050908
  Receipt Date: 20050908
  Transmission Date: 20060218
  Serious: Yes (Hospitalization)
  Sender: FDA-Public Use
  Company Number: None

PATIENT
  Age: 81 Year
  Sex: Male
  Weight: 82.5 kg

DRUGS (1)
  1. AMBIEN [Suspect]
     Indication: SOMNOLENCE

REACTIONS (2)
  - DIZZINESS [None]
  - FALL [None]
